FAERS Safety Report 6433735-X (Version None)
Quarter: 2009Q4

REPORT INFORMATION
  Report Type: 
  Country: None (occurrence: None)
  Receive Date: 20091110
  Receipt Date: 20091029
  Transmission Date: 20100525
  Serious: No
  Sender: FDA-Public Use
  Company Number: US-B.I. PHARMACEUTICALS,INC./RIDGEFIELD-2009-BP-12608BP

PATIENT
  Age: 54 Year
  Sex: Female

DRUGS (2)
  1. ZANTAC 75 [Suspect]
     Indication: GASTRITIS
     Dosage: 150 MG
     Route: 048
     Dates: start: 20091019, end: 20091028
  2. VITAMIN D [Concomitant]
     Indication: PROPHYLAXIS

REACTIONS (2)
  - DYSPEPSIA [None]
  - NAUSEA [None]
